FAERS Safety Report 7469767-2 (Version None)
Quarter: 2011Q2

REPORT INFORMATION
  Report Type: 
  Country: None (occurrence: None)
  Receive Date: 20110510
  Receipt Date: 20110427
  Transmission Date: 20111010
  Serious: Yes (Hospitalization, Other)
  Sender: FDA-Public Use
  Company Number: AU-CELGENEUS-008-20785-11031638

PATIENT
  Sex: Female
  Weight: 66 kg

DRUGS (5)
  1. ALKERAN [Concomitant]
     Route: 065
  2. THALOMID [Suspect]
     Indication: MULTIPLE MYELOMA
     Dosage: 200 MILLIGRAM
     Route: 048
     Dates: start: 20100922
  3. FLECAINIDE ACETATE [Concomitant]
     Route: 048
  4. ZOMETA [Concomitant]
     Route: 065
  5. DEXAMETHASONE [Concomitant]
     Route: 065
     Dates: start: 20100901

REACTIONS (7)
  - OEDEMA PERIPHERAL [None]
  - DIARRHOEA [None]
  - CARDIAC FLUTTER [None]
  - PNEUMONIA [None]
  - PYREXIA [None]
  - PARAESTHESIA [None]
  - NEUTROPENIA [None]
